FAERS Safety Report 6094722-7 (Version None)
Quarter: 2009Q1

REPORT INFORMATION
  Report Type: 
  Country: None (occurrence: None)
  Receive Date: 20090225
  Receipt Date: 20090213
  Transmission Date: 20090719
  Serious: Yes (Other)
  Sender: FDA-Public Use
  Company Number: 2009S1002637

PATIENT
  Age: 57 Year
  Sex: Male

DRUGS (5)
  1. AMNESTEEM [Suspect]
     Dosage: ORAL
     Route: 048
  2. CLARAVIS [Suspect]
     Dosage: ORAL
     Route: 048
  3. CLARAVIS [Suspect]
     Dosage: ORAL
     Route: 048
  4. CLARAVIS [Suspect]
     Dosage: ORAL
     Route: 048
  5. SOTRET [Suspect]
     Dosage: ORAL
     Route: 048

REACTIONS (2)
  - BRAIN NEOPLASM [None]
  - NEOPLASM PROGRESSION [None]
